FAERS Safety Report 8835342 (Version 1)
Quarter: 2012Q4

REPORT INFORMATION
  Report Type: 
  Country: US (occurrence: US)
  Receive Date: 20121011
  Receipt Date: 20121011
  Transmission Date: 20130627
  Serious: Yes (Hospitalization)
  Sender: FDA-Public Use
  Company Number: US-ROCHE-1112261

PATIENT
  Sex: Male

DRUGS (2)
  1. NUTROPIN [Suspect]
     Indication: HYPOTHALAMO-PITUITARY DISORDER
  2. NUTROPIN [Suspect]
     Indication: HYPOTHALAMO-PITUITARY DISORDER

REACTIONS (3)
  - Vomiting [Unknown]
  - Malaise [Unknown]
  - Catheter site infection [Unknown]
